FAERS Safety Report 4286782-0 (Version None)
Quarter: 2004Q1

REPORT INFORMATION
  Report Type: 
  Country: None (occurrence: None)
  Receive Date: 20040204
  Receipt Date: 20040120
  Transmission Date: 20041129
  Serious: Yes (Other)
  Sender: FDA-Public Use
  Company Number: USA-2003-0011221

PATIENT
  Age: 44 Year
  Sex: Female

DRUGS (3)
  1. CEFDITOREN PIVOXIL (SIMILAR TO NDA 21-222) (CEFDITOREN PIVOXIL) UNKNOW [Suspect]
     Indication: PARONYCHIA
     Dosage: 300 MG, DAILY, ORAL
     Route: 048
     Dates: start: 20031119, end: 20031120
  2. LOXONIN (LOXOPROFEN SODIUM) [Concomitant]
  3. SELBEX (TEPRENONE) [Concomitant]

REACTIONS (9)
  - ALANINE AMINOTRANSFERASE INCREASED [None]
  - ASPARTATE AMINOTRANSFERASE INCREASED [None]
  - BLOOD CREATINE PHOSPHOKINASE INCREASED [None]
  - GENERALISED OEDEMA [None]
  - HEPATIC FUNCTION ABNORMAL [None]
  - LEUKOCYTOCLASTIC VASCULITIS [None]
  - LIVER DISORDER [None]
  - RENAL FAILURE [None]
  - RHABDOMYOLYSIS [None]
